FAERS Safety Report 9884550 (Version 1)
Quarter: 2014Q1

REPORT INFORMATION
  Report Type: Spontaneous
  Country: US (occurrence: None)
  Receive Date: 20140205
  Receipt Date: 20140205
  Transmission Date: 20141002
  Serious: Yes (Death)
  Sender: FDA-Public Use
  Company Number: IMP_07177_2014

PATIENT
  Age: 53 Year
  Sex: Female

DRUGS (11)
  1. BUPROPION [Suspect]
     Indication: PRODUCT USED FOR UNKNOWN INDICATION
     Dosage: (DF ORAL) UNKNOWN UNTIL NOT CONTINUING?
     Route: 048
  2. METFORMIN [Suspect]
     Indication: PRODUCT USED FOR UNKNOWN INDICATION
     Dosage: (DF ORAL) UNKNOWN UNTIL NOT CONTINUING??
     Route: 048
  3. DIAZEPAM [Suspect]
     Indication: PRODUCT USED FOR UNKNOWN INDICATION
     Dosage: (DF ORAL) UNKNOWN UNTIL NOT CONTINUING??
  4. GABAPENTIN [Suspect]
     Indication: PRODUCT USED FOR UNKNOWN INDICATION
     Dosage: (DF ORAL) UNKNOWN UNTIL NOT CONTINUING??
  5. DULOXETINE [Suspect]
     Indication: PRODUCT USED FOR UNKNOWN INDICATION
     Dosage: (DF ORAL) UNKNOWN UNTIL NOT CONTINUING??
  6. LISINOPRIL [Suspect]
     Indication: PRODUCT USED FOR UNKNOWN INDICATION
     Dosage: (DF ORAL) UNKNOWN UNTIL NOT CONTINUING??
  7. OXYBUTYNIN [Suspect]
     Indication: PRODUCT USED FOR UNKNOWN INDICATION
     Dosage: (DF ORAL) UNKNOWN UNTIL NOT CONTINUING??
  8. MIRTAZAPINE [Suspect]
     Indication: PRODUCT USED FOR UNKNOWN INDICATION
     Dosage: (DF ORAL) UNKNOWN UNTIL NOT CONTINUING??
  9. LOVASTATIN [Suspect]
     Indication: PRODUCT USED FOR UNKNOWN INDICATION
     Dosage: (DF ORAL) UNKNOWN UNTIL NOT CONTINUING??
  10. VALPROIC ACID [Suspect]
     Indication: PRODUCT USED FOR UNKNOWN INDICATION
     Dosage: (DF ORAL) UNKNOWN UNTIL NOT CONTINUING??
  11. ACETAMINOPHEN [Suspect]
     Indication: PRODUCT USED FOR UNKNOWN INDICATION
     Dosage: (DF ORAL) UNKNOWN UNTIL NOT CONTINUING??

REACTIONS (3)
  - Poisoning [None]
  - Exposure via ingestion [None]
  - Completed suicide [None]
